FAERS Safety Report 19817371 (Version 2)
Quarter: 2021Q3

REPORT INFORMATION
  Report Type: Spontaneous
  Country: FR (occurrence: FR)
  Receive Date: 20210911
  Receipt Date: 20210915
  Transmission Date: 20211014
  Serious: Yes (Hospitalization)
  Sender: FDA-Public Use
  Company Number: FR-CELLTRION INC.-2021FR012114

PATIENT

DRUGS (5)
  1. RITUXIMAB. [Suspect]
     Active Substance: RITUXIMAB
     Indication: NODULAR LYMPHOCYTE PREDOMINANT HODGKIN LYMPHOMA
     Dosage: UNK
     Route: 065
  2. PREDNISOLONE. [Suspect]
     Active Substance: PREDNISOLONE
     Indication: NODULAR LYMPHOCYTE PREDOMINANT HODGKIN LYMPHOMA
     Dosage: UNK
     Route: 065
  3. CYCLOPHOSPHAMIDE. [Suspect]
     Active Substance: CYCLOPHOSPHAMIDE
     Indication: NODULAR LYMPHOCYTE PREDOMINANT HODGKIN LYMPHOMA
     Dosage: UNK
     Route: 065
  4. VINCRISTINE [Suspect]
     Active Substance: VINCRISTINE
     Indication: NODULAR LYMPHOCYTE PREDOMINANT HODGKIN LYMPHOMA
     Dosage: UNK
     Route: 065
  5. DOXORUBICIN [Suspect]
     Active Substance: DOXORUBICIN
     Indication: NODULAR LYMPHOCYTE PREDOMINANT HODGKIN LYMPHOMA
     Dosage: UNK
     Route: 065

REACTIONS (2)
  - Off label use [Unknown]
  - COVID-19 [Not Recovered/Not Resolved]
